FAERS Safety Report 24874744 (Version 1)
Quarter: 2025Q1

REPORT INFORMATION
  Report Type: Spontaneous
  Country: CN (occurrence: CN)
  Receive Date: 20250122
  Receipt Date: 20250122
  Transmission Date: 20250409
  Serious: Yes (Other)
  Sender: DR REDDYS
  Company Number: None

PATIENT
  Age: 53 Year
  Sex: Female
  Weight: 80.0 kg

DRUGS (3)
  1. OLANZAPINE [Suspect]
     Active Substance: OLANZAPINE
     Indication: Antipsychotic therapy
     Route: 048
     Dates: start: 20240718, end: 20241221
  2. VALPROATE MAGNESIUM [Suspect]
     Active Substance: VALPROATE MAGNESIUM
     Indication: Affect lability
     Route: 048
     Dates: start: 20240718, end: 20241221
  3. LITHIUM CARBONATE [Suspect]
     Active Substance: LITHIUM CARBONATE
     Indication: Affect lability
     Route: 048
     Dates: start: 20240718, end: 20241221

REACTIONS (1)
  - Myocardial necrosis marker increased [Unknown]

NARRATIVE: CASE EVENT DATE: 20241221
